FAERS Safety Report 19978119 (Version 1)
Quarter: 2021Q4

REPORT INFORMATION
  Report Type: Spontaneous
  Country: US (occurrence: US)
  Receive Date: 20211019
  Receipt Date: 20211019
  Transmission Date: 20220303
  Serious: Yes (Hospitalization)
  Sender: FDA-Public Use
  Company Number: None

PATIENT
  Age: 51 Year
  Sex: Female
  Weight: 90.7 kg

DRUGS (3)
  1. PERTUZUMAB [Suspect]
     Active Substance: PERTUZUMAB
     Dates: end: 20210917
  2. TAXOL [Suspect]
     Active Substance: PACLITAXEL
     Dates: end: 20211001
  3. HERCEPTIN [Suspect]
     Active Substance: TRASTUZUMAB
     Dates: end: 20210917

REACTIONS (3)
  - Dyspnoea [None]
  - Oedema [None]
  - Atelectasis [None]

NARRATIVE: CASE EVENT DATE: 20211004
